FAERS Safety Report 11396703 (Version 5)
Quarter: 2015Q4

REPORT INFORMATION
  Report Type: Spontaneous
  Country: JP (occurrence: JP)
  Receive Date: 20150819
  Receipt Date: 20151014
  Transmission Date: 20160304
  Serious: Yes (Hospitalization, Other)
  Sender: FDA-Public Use
  Company Number: JP-GLAXOSMITHKLINE-JP2015JPN117507

PATIENT
  Age: 44 Year
  Sex: Female
  Weight: 48 kg

DRUGS (9)
  1. ZYPREXA [Concomitant]
     Active Substance: OLANZAPINE
     Dosage: 5 MG, QD
  2. LAMICTAL [Suspect]
     Active Substance: LAMOTRIGINE
     Dosage: 50 MG, QD
     Route: 048
     Dates: start: 20150908
  3. LAMICTAL [Suspect]
     Active Substance: LAMOTRIGINE
     Indication: SCHIZOPHRENIA
     Dosage: 125 MG, BID
     Route: 048
     Dates: end: 20150804
  4. TRAZODONE [Concomitant]
     Active Substance: TRAZODONE HYDROCHLORIDE
     Dosage: 25 MG, QD
  5. LUNESTA [Concomitant]
     Active Substance: ESZOPICLONE
     Dosage: UNK, PRN
  6. LAMICTAL [Suspect]
     Active Substance: LAMOTRIGINE
     Dosage: 25 MG, QD
     Route: 048
     Dates: start: 20150818, end: 20150907
  7. SENIRAN [Concomitant]
     Active Substance: BROMAZEPAM
  8. RISPERIDONE. [Concomitant]
     Active Substance: RISPERIDONE
     Dosage: UNK, PRN
  9. FLUNITRAZEPAM [Concomitant]
     Active Substance: FLUNITRAZEPAM
     Dosage: 1 MG, QD

REACTIONS (3)
  - Depression [Unknown]
  - Treatment noncompliance [Unknown]
  - Schizophrenia [Recovering/Resolving]
